FAERS Safety Report 8709347 (Version 9)
Quarter: 2014Q2

REPORT INFORMATION
  Report Type: Report from Study
  Country: BR (occurrence: BR)
  Receive Date: 20120806
  Receipt Date: 20140429
  Transmission Date: 20141212
  Serious: Yes (Hospitalization, Other)
  Sender: FDA-Public Use
  Company Number: BR-ROCHE-1095154

PATIENT
  Age: 19 Year
  Sex: Male
  Weight: 70 kg

DRUGS (7)
  1. MABTHERA [Suspect]
     Indication: RHEUMATOID ARTHRITIS
     Route: 042
     Dates: start: 20101001, end: 201210
  2. MABTHERA [Suspect]
     Indication: SYSTEMIC LUPUS ERYTHEMATOSUS
     Route: 065
     Dates: start: 20101101, end: 20120101
  3. MABTHERA [Suspect]
     Indication: HAEMOLYTIC ANAEMIA
     Route: 042
     Dates: start: 201212
  4. MYCOPHENOLATE MOFETIL [Suspect]
     Indication: SYSTEMIC LUPUS ERYTHEMATOSUS
     Dosage: 3 TABLETS IN THE MORNING AND 3 AT NIGHT
     Route: 065
  5. METICORTEN [Concomitant]
     Indication: HAEMOLYTIC ANAEMIA
     Route: 065
  6. METICORTEN [Concomitant]
     Indication: SYSTEMIC LUPUS ERYTHEMATOSUS
  7. PREDNISONE [Concomitant]

REACTIONS (13)
  - Muscle strain [Recovered/Resolved]
  - Subcutaneous abscess [Recovered/Resolved]
  - Thrombosis [Recovered/Resolved]
  - Bacteraemia [Recovered/Resolved]
  - Cardiac disorder [Recovered/Resolved]
  - Abscess [Not Recovered/Not Resolved]
  - Cardiac disorder [Not Recovered/Not Resolved]
  - Infection [Recovered/Resolved]
  - Haemoglobin decreased [Recovered/Resolved]
  - Infection [Recovered/Resolved]
  - Drug ineffective [Unknown]
  - Off label use [Unknown]
  - Infection [Recovered/Resolved]
